FAERS Safety Report 8593065-7 (Version None)
Quarter: 2012Q3

REPORT INFORMATION
  Report Type: 
  Country: None (occurrence: None)
  Receive Date: 20120814
  Receipt Date: 20120806
  Transmission Date: 20120928
  Serious: Yes (Hospitalization)
  Sender: FDA-Public Use
  Company Number: FR-GLAXOSMITHKLINE-B0820592A

PATIENT
  Sex: Male

DRUGS (7)
  1. LEUCOVORIN CALCIUM [Suspect]
     Dosage: 25MG SEE DOSAGE TEXT
     Route: 048
     Dates: start: 20110701, end: 20120130
  2. VALACYCLOVIR HYDROCHLORIDE [Suspect]
     Dosage: 1000MG PER DAY
     Route: 048
     Dates: start: 20110701, end: 20120130
  3. OMEPRAZOLE [Suspect]
     Dosage: 20MG PER DAY
     Route: 048
     Dates: start: 20110701, end: 20120130
  4. ASPIRIN [Suspect]
     Route: 048
     Dates: start: 20111222, end: 20120130
  5. REVLIMID [Suspect]
     Indication: MULTIPLE MYELOMA
     Dosage: 10MG PER DAY
     Route: 048
     Dates: start: 20111030, end: 20120130
  6. PHENOXYMETHYL PENICILLIN [Suspect]
     Dosage: 2MU PER DAY
     Route: 048
     Dates: start: 20110701, end: 20120130
  7. BACTRIM [Suspect]
     Dosage: 1TAB SEE DOSAGE TEXT
     Route: 048
     Dates: start: 20110701, end: 20120130

REACTIONS (1)
  - DRUG RASH WITH EOSINOPHILIA AND SYSTEMIC SYMPTOMS [None]
